FAERS Safety Report 4910287-4 (Version None)
Quarter: 2006Q1

REPORT INFORMATION
  Report Type: 
  Country: None (occurrence: None)
  Receive Date: 20060213
  Receipt Date: 20050607
  Transmission Date: 20060701
  Serious: Yes (Other)
  Sender: FDA-Public Use
  Company Number: US-MERCK-0506USA01092

PATIENT
  Age: 38 Year
  Sex: Male
  Weight: 105 kg

DRUGS (2)
  1. VIOXX [Suspect]
     Indication: BACK PAIN
     Route: 048
     Dates: start: 19990501, end: 20040901
  2. VICODIN [Concomitant]
     Route: 065

REACTIONS (3)
  - EMOTIONAL DISTRESS [None]
  - PULMONARY EMBOLISM [None]
  - TRANSIENT ISCHAEMIC ATTACK [None]
